FAERS Safety Report 11995471 (Version 2)
Quarter: 2016Q3

REPORT INFORMATION
  Report Type: Report from Study
  Country: DE (occurrence: DE)
  Receive Date: 20160203
  Receipt Date: 20160714
  Transmission Date: 20161109
  Serious: No
  Sender: FDA-Public Use
  Company Number: DE-JNJFOC-20160123216

PATIENT

DRUGS (4)
  1. REMICADE [Suspect]
     Active Substance: INFLIXIMAB
     Indication: COLITIS ULCERATIVE
     Route: 042
     Dates: start: 20100802
  2. DECORTIN [Concomitant]
     Active Substance: PREDNISONE
     Route: 065
  3. SULFASALAZINE. [Concomitant]
     Active Substance: SULFASALAZINE
     Dosage: SINCE FIRST DIAGNOSIS, PAST 6 MONTHS
     Route: 065
  4. 5-ASA [Concomitant]
     Active Substance: MESALAMINE
     Dosage: SINCE FIRST DIAGNOSIS, PAST 6 MONTHS
     Route: 065

REACTIONS (1)
  - Intestinal stenosis [Recovered/Resolved]

NARRATIVE: CASE EVENT DATE: 20101112
